FAERS Safety Report 13536393 (Version 2)
Quarter: 2017Q3

REPORT INFORMATION
  Report Type: Spontaneous
  Country: US (occurrence: US)
  Receive Date: 20170511
  Receipt Date: 20170808
  Transmission Date: 20171127
  Serious: No
  Sender: FDA-Public Use
  Company Number: US-GALDERMA-US17002323

PATIENT
  Age: 16 Year
  Sex: Male

DRUGS (2)
  1. EPIDUO FORTE [Suspect]
     Active Substance: ADAPALENE\BENZOYL PEROXIDE
     Route: 061
  2. ACCUTANE [Concomitant]
     Active Substance: ISOTRETINOIN

REACTIONS (1)
  - No adverse event [Unknown]
